FAERS Safety Report 6462728-1 (Version None)
Quarter: 2009Q4

REPORT INFORMATION
  Report Type: 
  Country: None (occurrence: None)
  Receive Date: 20091130
  Receipt Date: 20091123
  Transmission Date: 20100525
  Serious: Yes (Death)
  Sender: FDA-Public Use
  Company Number: US-GILEAD-2009-0025637

PATIENT
  Sex: Male
  Weight: 45.4 kg

DRUGS (12)
  1. LETAIRIS [Suspect]
     Indication: PULMONARY ARTERIAL HYPERTENSION
     Route: 048
     Dates: start: 20090224, end: 20091114
  2. REMODULIN [Concomitant]
  3. TOPROL-XL [Concomitant]
  4. LISINOPRIL [Concomitant]
  5. LIPITOR [Concomitant]
  6. NITRO-DUR [Concomitant]
  7. COUMADIN [Concomitant]
  8. LASIX [Concomitant]
  9. SPIRIVA [Concomitant]
  10. PREDNISONE [Concomitant]
  11. OXYCODONE HCL AND ACETAMINOPHEN [Concomitant]
  12. GABAPENTIN [Concomitant]

REACTIONS (1)
  - DEATH [None]
